FAERS Safety Report 18753107 (Version 1)
Quarter: 2021Q1

REPORT INFORMATION
  Report Type: Spontaneous
  Country: US (occurrence: US)
  Receive Date: 20210118
  Receipt Date: 20210118
  Transmission Date: 20210419
  Serious: No
  Sender: FDA-Public Use
  Company Number: US-BRACCO-2020US04479

PATIENT

DRUGS (1)
  1. CARDIOGEN?82 [Suspect]
     Active Substance: RUBIDIUM CHLORIDE RB-82
     Indication: CARDIAC IMAGING PROCEDURE
     Dosage: UNK UNK, SINGLE
     Dates: start: 20201028, end: 20201028

REACTIONS (1)
  - Occupational exposure to radiation [Unknown]

NARRATIVE: CASE EVENT DATE: 20201028
